FAERS Safety Report 7249605-3 (Version None)
Quarter: 2011Q1

REPORT INFORMATION
  Report Type: 
  Country: None (occurrence: None)
  Receive Date: 20110128
  Receipt Date: 20101216
  Transmission Date: 20110831
  Serious: Yes (Other)
  Sender: FDA-Public Use
  Company Number: US-BAYER-201019666NA

PATIENT
  Sex: Female

DRUGS (13)
  1. MAXALT [Concomitant]
     Dosage: 5 MG, UNK
  2. UNCODEABLE ^UNCLASSIFIABLE^ [Concomitant]
     Dosage: 2 MG, QD
  3. LEVSIN/SL [Concomitant]
     Dosage: 0.125 MG, PRN
     Route: 060
  4. MACROBID [Concomitant]
     Dosage: 100 MG, QD
  5. GAS RELIEF [Concomitant]
     Dosage: 180 MG, BID
  6. YAZ [Suspect]
     Indication: PRODUCT USED FOR UNKNOWN INDICATION
     Route: 048
     Dates: start: 20070101, end: 20080101
  7. DETROL LA [Concomitant]
     Dosage: 4 MG, QD
  8. REGLAN [Concomitant]
     Indication: GASTRITIS BACTERIAL
  9. ZOVIA 1/35E-21 [Concomitant]
  10. YASMIN [Suspect]
     Indication: PRODUCT USED FOR UNKNOWN INDICATION
     Route: 048
     Dates: start: 20070101, end: 20080101
  11. ULTRAM [Concomitant]
     Dosage: 50 MG, PRN
  12. NEXIUM [Concomitant]
     Indication: GASTRITIS BACTERIAL
     Dosage: 40 MG, BID
  13. TOPAMAX [Concomitant]
     Dosage: 50 MG, BID

REACTIONS (3)
  - FLANK PAIN [None]
  - BILIARY TRACT DISORDER [None]
  - ABDOMINAL PAIN UPPER [None]
